FAERS Safety Report 7968863-0 (Version None)
Quarter: 2011Q4

REPORT INFORMATION
  Report Type: 
  Country: None (occurrence: None)
  Receive Date: 20111122
  Receipt Date: 20110812
  Transmission Date: 20120403
  Serious: Yes (Other)
  Sender: FDA-Public Use
  Company Number: PHHY2011US67148

PATIENT
  Age: 27 Year
  Sex: Female

DRUGS (1)
  1. GILENYA [Suspect]
     Dosage: 0.5 MG, DAILY, ORAL
     Route: 048
     Dates: start: 20110429

REACTIONS (7)
  - PAIN [None]
  - FATIGUE [None]
  - COUGH [None]
  - NASOPHARYNGITIS [None]
  - BRONCHITIS [None]
  - NAUSEA [None]
  - CHILLS [None]
